FAERS Safety Report 7235216-2 (Version None)
Quarter: 2011Q1

REPORT INFORMATION
  Report Type: 
  Country: None (occurrence: None)
  Receive Date: 20110111
  Receipt Date: 20110103
  Transmission Date: 20110831
  Serious: Yes (Other)
  Sender: FDA-Public Use
  Company Number: 2010SP024081

PATIENT
  Age: 33 Year
  Sex: Female
  Weight: 70 kg

DRUGS (1)
  1. NUVARING [Suspect]
     Indication: CONTRACEPTION
     Dosage: ;QM; VAG
     Route: 067
     Dates: start: 20090101

REACTIONS (4)
  - ACCIDENT AT WORK [None]
  - INCORRECT DRUG ADMINISTRATION DURATION [None]
  - METRORRHAGIA [None]
  - ANKLE FRACTURE [None]
